FAERS Safety Report 15456002 (Version 1)
Quarter: 2018Q3

REPORT INFORMATION
  Report Type: Spontaneous
  Country: US (occurrence: US)
  Receive Date: 20180927
  Receipt Date: 20180927
  Transmission Date: 20181010
  Serious: Yes (Other)
  Sender: FDA-Public Use
  Company Number: None

PATIENT
  Age: 62 Year
  Sex: Female

DRUGS (1)
  1. GLATIRAMER ACETATE INJ [Suspect]
     Active Substance: GLATIRAMER ACETATE
     Indication: MULTIPLE SCLEROSIS
     Route: 058

REACTIONS (8)
  - Product substitution issue [None]
  - Condition aggravated [None]
  - Inability to afford medication [None]
  - Injection site irritation [None]
  - Injection site erythema [None]
  - Insurance issue [None]
  - Injection site swelling [None]
  - Drug dose omission [None]

NARRATIVE: CASE EVENT DATE: 2014
